FAERS Safety Report 7249321-8 (Version None)
Quarter: 2011Q1

REPORT INFORMATION
  Report Type: 
  Country: None (occurrence: None)
  Receive Date: 20110128
  Receipt Date: 20101214
  Transmission Date: 20110831
  Serious: Yes (Death, Life-Threatening, Hospitalization, Other)
  Sender: FDA-Public Use
  Company Number: US-BAYER-2010-005079

PATIENT
  Age: 78 Year
  Sex: Male
  Weight: 258 kg

DRUGS (19)
  1. ANTINEOPLASTIC AGENTS [Suspect]
     Indication: METASTATIC RENAL CELL CARCINOMA
     Dosage: 3 MG, BID
     Route: 048
     Dates: start: 20100929, end: 20101110
  2. COREG [Concomitant]
     Dosage: UNK
     Dates: start: 20101104
  3. MELOXICAM [Concomitant]
     Dosage: UNK
     Dates: start: 20101104
  4. LEVOTHYROXINE SODIUM [Concomitant]
     Indication: HYPOTHYROIDISM
     Dosage: UNK
     Dates: start: 20101104
  5. GUAIFENESIN [Concomitant]
     Indication: COUGH
     Dosage: UNK
     Dates: start: 20101014
  6. ACETAMINOPHEN [Concomitant]
     Indication: PAIN
     Dosage: UNK
     Dates: start: 20100907
  7. CHLORTHALIDONE [Concomitant]
     Indication: HYPERTENSION
     Dosage: UNK
     Dates: start: 20101019
  8. ACTOS [Concomitant]
     Dosage: UNK
     Dates: start: 20100907
  9. SIMVASTATIN [Concomitant]
     Indication: HYPERLIPIDAEMIA
     Dosage: UNK
     Dates: start: 20100907
  10. BAZA [Concomitant]
     Indication: GROIN INFECTION
     Dosage: UNK
     Dates: start: 20101104
  11. AMOXICILLIN [Concomitant]
     Indication: URINARY TRACT INFECTION
     Dosage: UNK
     Dates: start: 20101029
  12. LOTRIMIN [Concomitant]
     Indication: GROIN INFECTION
     Dosage: UNK
     Dates: start: 20101014
  13. ASPIRIN [Suspect]
     Indication: CARDIOVASCULAR EVENT PROPHYLAXIS
     Dosage: 81 MG, QD
     Route: 048
     Dates: start: 20100907
  14. FLOMAX [Concomitant]
     Dosage: UNK
     Dates: start: 20101110
  15. AMLODIPINE BESYLATE [Concomitant]
     Dosage: UNK
     Dates: start: 20101110
  16. SENNA [Concomitant]
     Indication: CONSTIPATION
     Dosage: UNK
     Dates: start: 20100907
  17. CELEBREX [Concomitant]
     Indication: PAIN
     Dosage: UNK
     Dates: start: 20100907
  18. CARAFATE [Concomitant]
     Indication: STOMATITIS
     Dosage: UNK
     Dates: start: 20101104
  19. NYSTATIN [Concomitant]
     Indication: GROIN INFECTION
     Dosage: UNK
     Dates: start: 20101020

REACTIONS (10)
  - DYSPNOEA [None]
  - BRADYCARDIA [None]
  - UNRESPONSIVE TO STIMULI [None]
  - HYPOTENSION [None]
  - TACHYPNOEA [None]
  - CARDIAC ARREST [None]
  - HAEMOPTYSIS [None]
  - EYE MOVEMENT DISORDER [None]
  - DYSKINESIA [None]
  - CONVULSION [None]
